FAERS Safety Report 7044105-8 (Version None)
Quarter: 2010Q4

REPORT INFORMATION
  Report Type: 
  Country: None (occurrence: None)
  Receive Date: 20101013
  Receipt Date: 20101004
  Transmission Date: 20110411
  Serious: Yes (Death, Hospitalization)
  Sender: FDA-Public Use
  Company Number: FR-PFIZER INC-2010092871

PATIENT
  Age: 74 Year
  Sex: Male
  Weight: 76.8 kg

DRUGS (1)
  1. SUTENT [Suspect]
     Indication: METASTASES TO CENTRAL NERVOUS SYSTEM
     Dosage: 50 MG, UNK
     Dates: start: 20100709, end: 20100723

REACTIONS (3)
  - GENERAL PHYSICAL HEALTH DETERIORATION [None]
  - RECTAL HAEMORRHAGE [None]
  - VOMITING [None]
